FAERS Safety Report 21689342 (Version 4)
Quarter: 2023Q1

REPORT INFORMATION
  Report Type: Spontaneous
  Country: US (occurrence: US)
  Receive Date: 20221206
  Receipt Date: 20230308
  Transmission Date: 20230417
  Serious: Yes (Other)
  Sender: FDA-Public Use
  Company Number: US-JNJFOC-20221201121

PATIENT
  Age: 72 Year
  Sex: Male

DRUGS (2)
  1. ERLEADA [Suspect]
     Active Substance: APALUTAMIDE
     Indication: Prostate cancer
     Route: 048
  2. ERLEADA [Suspect]
     Active Substance: APALUTAMIDE
     Route: 048

REACTIONS (9)
  - Neuropathy peripheral [Not Recovered/Not Resolved]
  - Mouth injury [Unknown]
  - Fall [Unknown]
  - Myalgia [Not Recovered/Not Resolved]
  - Hypokinesia [Unknown]
  - Arthralgia [Unknown]
  - Depression [Unknown]
  - Dizziness [Unknown]
  - Thyroid disorder [Unknown]

NARRATIVE: CASE EVENT DATE: 20221101
